FAERS Safety Report 12575178 (Version 3)
Quarter: 2017Q1

REPORT INFORMATION
  Report Type: Spontaneous
  Country: US (occurrence: US)
  Receive Date: 20160720
  Receipt Date: 20170217
  Transmission Date: 20170428
  Serious: Yes (Other)
  Sender: FDA-Public Use
  Company Number: US-ASTELLAS-2016US002248

PATIENT
  Age: 65 Year
  Sex: Female

DRUGS (4)
  1. CLONAZEPAM. [Concomitant]
     Active Substance: CLONAZEPAM
     Indication: PRODUCT USED FOR UNKNOWN INDICATION
     Dosage: UNK UNK, THRICE DAILY
     Route: 065
  2. VESICARE [Suspect]
     Active Substance: SOLIFENACIN SUCCINATE
     Indication: URGE INCONTINENCE
     Route: 048
     Dates: start: 201505
  3. VESICARE [Suspect]
     Active Substance: SOLIFENACIN SUCCINATE
     Indication: HYPERTONIC BLADDER
     Route: 065
     Dates: start: 20150417
  4. VICODIN [Concomitant]
     Active Substance: ACETAMINOPHEN\HYDROCODONE BITARTRATE
     Indication: PRODUCT USED FOR UNKNOWN INDICATION
     Dosage: UNK UNK, UNKNOWN FREQ.
     Route: 065

REACTIONS (6)
  - Fall [Recovered/Resolved]
  - Drug dose omission [Unknown]
  - Malaise [Unknown]
  - Drug effect incomplete [Unknown]
  - Back injury [Recovered/Resolved]
  - Wrist fracture [Recovered/Resolved]

NARRATIVE: CASE EVENT DATE: 201610
